FAERS Safety Report 10215733 (Version 1)
Quarter: 2014Q2

REPORT INFORMATION
  Report Type: Spontaneous
  Country: DE (occurrence: DE)
  Receive Date: 20140604
  Receipt Date: 20140604
  Transmission Date: 20141212
  Serious: Yes (Hospitalization)
  Sender: FDA-Public Use
  Company Number: DE-JNJFOC-20140513831

PATIENT
  Age: 52 Year
  Sex: Female

DRUGS (19)
  1. RISPERDAL [Suspect]
     Indication: SCHIZOPHRENIA, PARANOID TYPE
     Route: 048
     Dates: start: 20131014, end: 20131021
  2. RISPERDAL [Suspect]
     Indication: SCHIZOPHRENIA, PARANOID TYPE
     Route: 048
     Dates: start: 20131005, end: 20131007
  3. RISPERDAL [Suspect]
     Indication: SCHIZOPHRENIA, PARANOID TYPE
     Dosage: 7-4 MG
     Route: 048
     Dates: start: 20131008, end: 20131013
  4. RISPERDAL [Suspect]
     Indication: SCHIZOPHRENIA, PARANOID TYPE
     Route: 048
     Dates: start: 20130930, end: 20131003
  5. RISPERDAL [Suspect]
     Indication: SCHIZOPHRENIA, PARANOID TYPE
     Route: 048
     Dates: start: 20130920, end: 20130920
  6. RISPERDAL [Suspect]
     Indication: SCHIZOPHRENIA, PARANOID TYPE
     Route: 048
     Dates: start: 20130921, end: 20130926
  7. RISPERDAL [Suspect]
     Indication: SCHIZOPHRENIA, PARANOID TYPE
     Route: 048
     Dates: start: 20130927, end: 20130929
  8. RISPERDAL [Suspect]
     Indication: SCHIZOPHRENIA, PARANOID TYPE
     Route: 048
     Dates: end: 20130919
  9. RISPERDAL [Suspect]
     Indication: SCHIZOPHRENIA, PARANOID TYPE
     Route: 048
     Dates: start: 20131004, end: 20131004
  10. RISPERDAL CONSTA [Suspect]
     Indication: SCHIZOPHRENIA, PARANOID TYPE
     Route: 030
     Dates: start: 20131004, end: 20131004
  11. RISPERDAL CONSTA [Suspect]
     Indication: SCHIZOPHRENIA, PARANOID TYPE
     Route: 030
     Dates: start: 20131018, end: 20131018
  12. TAVOR [Concomitant]
     Route: 065
     Dates: start: 20130918
  13. TAVOR [Concomitant]
     Route: 065
     Dates: start: 20130919, end: 20130920
  14. TAVOR [Concomitant]
     Route: 065
     Dates: start: 20130921, end: 20130924
  15. TAVOR [Concomitant]
     Route: 065
     Dates: start: 20130925, end: 20130929
  16. TAVOR [Concomitant]
     Route: 065
     Dates: start: 20130930, end: 20131013
  17. ZYPREXA [Concomitant]
     Route: 065
     Dates: start: 20131021, end: 20131022
  18. ZYPREXA [Concomitant]
     Route: 065
     Dates: start: 20131014, end: 20131020
  19. ZYPREXA [Concomitant]
     Route: 065
     Dates: start: 20131023

REACTIONS (1)
  - Ventricular extrasystoles [Recovered/Resolved]
